FAERS Safety Report 13541305 (Version 2)
Quarter: 2017Q2

REPORT INFORMATION
  Report Type: Spontaneous
  Country: GB (occurrence: GB)
  Receive Date: 20170512
  Receipt Date: 20170519
  Transmission Date: 20170830
  Serious: Yes (Other)
  Sender: FDA-Public Use
  Company Number: GB-SA-2017SA083574

PATIENT
  Sex: Female

DRUGS (12)
  1. FULTIUM-D3 [Suspect]
     Active Substance: CHOLECALCIFEROL
     Dosage: DOSE:800 UNIT(S)
     Route: 065
  2. FABRAZYME [Suspect]
     Active Substance: AGALSIDASE BETA
     Route: 041
  3. NEBIVOLOL. [Suspect]
     Active Substance: NEBIVOLOL
     Route: 065
  4. CITALOPRAM [Suspect]
     Active Substance: CITALOPRAM HYDROBROMIDE
     Route: 065
  5. PERINDOPRIL [Suspect]
     Active Substance: PERINDOPRIL
     Route: 065
  6. AMIODARONE [Suspect]
     Active Substance: AMIODARONE
     Route: 065
  7. CLOPIDOGREL BISULFATE. [Suspect]
     Active Substance: CLOPIDOGREL BISULFATE
     Route: 065
  8. LYRICA [Suspect]
     Active Substance: PREGABALIN
     Route: 065
  9. SALBUTAMOL [Suspect]
     Active Substance: ALBUTEROL
     Route: 065
  10. LANSOPRAZOLE. [Suspect]
     Active Substance: LANSOPRAZOLE
     Route: 065
  11. COCODAMOL [Suspect]
     Active Substance: ACETAMINOPHEN\CODEINE PHOSPHATE
     Dosage: DOSE: 30/500MGS 4X DAILY
     Route: 065
  12. ASPIRIN. [Suspect]
     Active Substance: ASPIRIN
     Route: 065

REACTIONS (1)
  - Lower respiratory tract infection [Unknown]
